FAERS Safety Report 23922662 (Version 2)
Quarter: 2024Q2

REPORT INFORMATION
  Report Type: Spontaneous
  Country: FR (occurrence: None)
  Receive Date: 20240531
  Receipt Date: 20240625
  Transmission Date: 20240716
  Serious: Yes (Hospitalization, Other)
  Sender: FDA-Public Use
  Company Number: FR-Orion Corporation ORION PHARMA-TREX2024-0122

PATIENT
  Age: 70 Year
  Sex: Female
  Weight: 73 kg

DRUGS (3)
  1. METHOTREXATE [Suspect]
     Active Substance: METHOTREXATE
     Indication: Psoriatic arthropathy
     Dosage: STRENGTH: 10 MG
     Dates: start: 20240110, end: 20240130
  2. OMEPRAZOLE [Concomitant]
     Active Substance: DONEPEZIL HYDROCHLORIDE\OMEPRAZOLE\OMEPRAZOLE MAGNESIUM
     Dosage: STRENGTH: 20 MG
  3. DOLIPRANE [Concomitant]
     Active Substance: ACETAMINOPHEN
     Dosage: ON DEMAND

REACTIONS (10)
  - Pancytopenia [Recovered/Resolved]
  - General physical health deterioration [Recovered/Resolved]
  - Drug reaction with eosinophilia and systemic symptoms [Recovered/Resolved]
  - Oral herpes [Recovered/Resolved]
  - Myelosuppression [Recovered/Resolved]
  - Epstein-Barr virus infection [Recovered/Resolved]
  - Herpes simplex reactivation [Recovered/Resolved]
  - Epstein-Barr virus infection reactivation [Recovered/Resolved]
  - Product substitution issue [Recovered/Resolved]
  - Product complaint [Unknown]

NARRATIVE: CASE EVENT DATE: 20240101
